FAERS Safety Report 20169169 (Version 1)
Quarter: 2021Q4

REPORT INFORMATION
  Report Type: Spontaneous
  Country: CN (occurrence: CN)
  Receive Date: 20211210
  Receipt Date: 20211210
  Transmission Date: 20220303
  Serious: Yes (Hospitalization)
  Sender: FDA-Public Use
  Company Number: CN-BAXTER-2021BAX038861

PATIENT
  Age: 53 Year
  Sex: Male
  Weight: 71 kg

DRUGS (16)
  1. CYCLOPHOSPHAMIDE [Suspect]
     Active Substance: CYCLOPHOSPHAMIDE
     Indication: Angioimmunoblastic T-cell lymphoma
     Dosage: CYCLOPHOSPHAMIDE 1350 MG + 0.9% SODIUM CHLORIDE 250 ML
     Route: 041
     Dates: start: 20211113, end: 20211113
  2. CYCLOPHOSPHAMIDE [Suspect]
     Active Substance: CYCLOPHOSPHAMIDE
     Dosage: DOSE REINTRODUCED, CYCLOPHOSPHAMIDE + 0.9% SODIUM CHLORIDE
     Route: 041
  3. SODIUM CHLORIDE [Suspect]
     Active Substance: SODIUM CHLORIDE
     Indication: Medication dilution
     Dosage: ETOPOSIDE INJECTION 0.18 G + 0.9% SODIUM CHLORIDE INJECTION 900 ML
     Route: 041
     Dates: start: 20211113, end: 20211116
  4. SODIUM CHLORIDE [Suspect]
     Active Substance: SODIUM CHLORIDE
     Dosage: CYCLOPHOSPHAMIDE 1350 MG + 0.9% SODIUM CHLORIDE 250 ML
     Route: 041
     Dates: start: 20211113, end: 20211113
  5. SODIUM CHLORIDE [Suspect]
     Active Substance: SODIUM CHLORIDE
     Dosage: VINCRISTINE SULFATE 2 MG + 0.9% SODIUM CHLORIDE 100 ML
     Route: 041
     Dates: start: 20211113, end: 20211113
  6. SODIUM CHLORIDE [Suspect]
     Active Substance: SODIUM CHLORIDE
     Dosage: DOSE REINTRODUCED, ETOPOSIDE + 0.9% SODIUM CHLORIDE
     Route: 041
  7. SODIUM CHLORIDE [Suspect]
     Active Substance: SODIUM CHLORIDE
     Dosage: DOSE REINTRODUCED, CYCLOPHOSPHAMIDE + 0.9% SODIUM CHLORIDE
     Route: 041
  8. SODIUM CHLORIDE [Suspect]
     Active Substance: SODIUM CHLORIDE
     Dosage: DOSE REINTRODUCED, VINCRISTINE SULFATE + 0.9% SODIUM CHLORIDE
     Route: 041
  9. DEXTROSE [Suspect]
     Active Substance: DEXTROSE
     Indication: Medication dilution
     Dosage: PIRARUBICIN HYDROCHLORIDE 90 MG + GLUCOSE 500 ML
     Route: 041
     Dates: start: 20211113, end: 20211113
  10. DEXTROSE [Suspect]
     Active Substance: DEXTROSE
     Dosage: DOSE REINTRODUCED, PIRARUBICIN HYDROCHLORIDE + GLUCOSE
     Route: 041
  11. PIRARUBICIN HYDROCHLORIDE [Suspect]
     Active Substance: PIRARUBICIN HYDROCHLORIDE
     Indication: Angioimmunoblastic T-cell lymphoma
     Dosage: PIRARUBICIN HYDROCHLORIDE 90 MG + GLUCOSE 500 ML
     Route: 041
     Dates: start: 20211113, end: 20211113
  12. PIRARUBICIN HYDROCHLORIDE [Suspect]
     Active Substance: PIRARUBICIN HYDROCHLORIDE
     Dosage: DOSE REINTRODUCED, PIRARUBICIN HYDROCHLORIDE + GLUCOSE
     Route: 041
  13. VINCRISTINE SULFATE [Suspect]
     Active Substance: VINCRISTINE SULFATE
     Indication: Angioimmunoblastic T-cell lymphoma
     Dosage: VINCRISTINE SULFATE 2 MG + 0.9% SODIUM CHLORIDE 100 ML
     Route: 041
     Dates: start: 20211113, end: 20211113
  14. VINCRISTINE SULFATE [Suspect]
     Active Substance: VINCRISTINE SULFATE
     Dosage: DOSE REINTRODUCED, VINCRISTINE SULFATE + 0.9% SODIUM CHLORIDE
     Route: 041
  15. ETOPOSIDE [Suspect]
     Active Substance: ETOPOSIDE
     Indication: Angioimmunoblastic T-cell lymphoma
     Dosage: ETOPOSIDE 0.18 G + 0.9% SODIUM CHLORIDE 900 ML
     Route: 041
     Dates: start: 20211113, end: 20211116
  16. ETOPOSIDE [Suspect]
     Active Substance: ETOPOSIDE
     Dosage: DOSE REINTRODUCED, ETOPOSIDE + 0.9% SODIUM CHLORIDE
     Route: 041

REACTIONS (1)
  - Platelet count decreased [Recovering/Resolving]

NARRATIVE: CASE EVENT DATE: 20211119
